FAERS Safety Report 9877993 (Version 1)
Quarter: 2014Q1

REPORT INFORMATION
  Report Type: Spontaneous
  Country: IT (occurrence: IT)
  Receive Date: 20140206
  Receipt Date: 20140206
  Transmission Date: 20141002
  Serious: Yes (Hospitalization)
  Sender: FDA-Public Use
  Company Number: IT-TEVA-460665ISR

PATIENT
  Age: 50 Year
  Sex: Male

DRUGS (2)
  1. DICLOFENAC [Suspect]
     Indication: MUSCULOSKELETAL PAIN
     Dosage: 1 DF DAILY
     Route: 048
     Dates: start: 20131116, end: 20131120
  2. TARGIN [Concomitant]
     Indication: ARTHRALGIA
     Dosage: 1 DF
     Route: 048
     Dates: start: 20131116, end: 20131120

REACTIONS (5)
  - Abdominal pain upper [Recovering/Resolving]
  - Gastric disorder [Recovering/Resolving]
  - Dyspepsia [Recovering/Resolving]
  - Nausea [Recovering/Resolving]
  - Decreased appetite [Recovering/Resolving]
